FAERS Safety Report 16058969 (Version 1)
Quarter: 2019Q1

REPORT INFORMATION
  Report Type: Spontaneous
  Country: US (occurrence: US)
  Receive Date: 20190311
  Receipt Date: 20190311
  Transmission Date: 20190418
  Serious: Yes (Other)
  Sender: FDA-Public Use
  Company Number: US-ASTRAZENECA-2018SF34415

PATIENT

DRUGS (1)
  1. PRILOSEC [Suspect]
     Active Substance: OMEPRAZOLE MAGNESIUM
     Route: 002
     Dates: start: 2015, end: 2016

REACTIONS (3)
  - Clostridium difficile infection [Unknown]
  - Chronic kidney disease [Unknown]
  - Renal failure [Unknown]
